FAERS Safety Report 5177003-5 (Version None)
Quarter: 2006Q4

REPORT INFORMATION
  Report Type: 
  Country: None (occurrence: None)
  Receive Date: 20061218
  Receipt Date: 20050903
  Transmission Date: 20070319
  Serious: Yes (Hospitalization)
  Sender: FDA-Public Use
  Company Number: US-GLAXOSMITHKLINE-A0573171A

PATIENT
  Age: 22 Year
  Sex: Female
  Weight: 49.6 kg

DRUGS (4)
  1. TAFENOQUINE [Suspect]
     Indication: MEDICAL OBSERVATION
     Dosage: 400MG PER DAY
     Route: 048
     Dates: start: 20050826, end: 20050828
  2. MIDAZOLAM HCL [Suspect]
     Indication: MEDICAL OBSERVATION
     Dosage: 5MG SEE DOSAGE TEXT
     Route: 048
     Dates: start: 20050819, end: 20050828
  3. FLURBIPROFEN [Suspect]
     Indication: MEDICAL OBSERVATION
     Dosage: 50MG SEE DOSAGE TEXT
     Route: 048
     Dates: start: 20050820, end: 20050829
  4. CAFFEINE [Suspect]
     Indication: MEDICAL OBSERVATION
     Dosage: 200MG SEE DOSAGE TEXT
     Route: 048
     Dates: start: 20050820, end: 20050829

REACTIONS (18)
  - ANOREXIA [None]
  - ASTHENIA [None]
  - BLOOD ALBUMIN DECREASED [None]
  - BLOOD CALCIUM DECREASED [None]
  - BLOOD METHAEMOGLOBIN PRESENT [None]
  - DIZZINESS [None]
  - FATIGUE [None]
  - HAEMATOCRIT DECREASED [None]
  - HAEMOGLOBIN DECREASED [None]
  - HEADACHE [None]
  - LIP DISCOLOURATION [None]
  - MANGANESE INCREASED [None]
  - NAUSEA [None]
  - OXYGEN SATURATION DECREASED [None]
  - PALLOR [None]
  - PALPITATIONS [None]
  - PROTEIN TOTAL DECREASED [None]
  - RED CELL DISTRIBUTION WIDTH INCREASED [None]
